FAERS Safety Report 4864132-6 (Version None)
Quarter: 2005Q4

REPORT INFORMATION
  Report Type: 
  Country: None (occurrence: None)
  Receive Date: 20051222
  Receipt Date: 20051215
  Transmission Date: 20060501
  Serious: Yes (Other)
  Sender: FDA-Public Use
  Company Number: 13202189

PATIENT
  Age: 35 Year
  Sex: Male

DRUGS (3)
  1. LAMIVUDINE [Suspect]
     Indication: HIV INFECTION
     Dates: start: 20030908
  2. EFAVIRENZ [Suspect]
     Indication: HIV INFECTION
     Dates: start: 20030908
  3. STAVUDINE [Suspect]
     Indication: HIV INFECTION
     Dates: start: 20030908

REACTIONS (1)
  - GAMMA-GLUTAMYLTRANSFERASE INCREASED [None]
